FAERS Safety Report 7781713-0 (Version None)
Quarter: 2011Q3

REPORT INFORMATION
  Report Type: 
  Country: None (occurrence: None)
  Receive Date: 20110927
  Receipt Date: 20110922
  Transmission Date: 20111222
  Serious: Yes (Hospitalization)
  Sender: FDA-Public Use
  Company Number: US-GLAXOSMITHKLINE-A0878541A

PATIENT
  Age: 42 Year
  Sex: Male
  Weight: 67.3 kg

DRUGS (1)
  1. AVANDIA [Suspect]
     Indication: DIABETES MELLITUS
     Dosage: 4MG TWICE PER DAY
     Route: 048
     Dates: start: 20070101, end: 20080101

REACTIONS (3)
  - MYOCARDIAL INFARCTION [None]
  - ACTIVITIES OF DAILY LIVING IMPAIRED [None]
  - INSOMNIA [None]
